FAERS Safety Report 21837236 (Version 13)
Quarter: 2023Q4

REPORT INFORMATION
  Report Type: Spontaneous
  Country: US (occurrence: US)
  Receive Date: 20230109
  Receipt Date: 20231113
  Transmission Date: 20240109
  Serious: No
  Sender: FDA-Public Use
  Company Number: US-PFIZER INC-202300004239

PATIENT
  Age: 40 Year
  Sex: Female
  Weight: 88.45 kg

DRUGS (2)
  1. GENOTROPIN [Suspect]
     Active Substance: SOMATROPIN
     Indication: Blood growth hormone decreased
     Dosage: 0.6 BY INJECTION EVERY DAY
  2. GENOTROPIN [Suspect]
     Active Substance: SOMATROPIN
     Dosage: 0.8 MG

REACTIONS (7)
  - Poor quality device used [Unknown]
  - Drug dose omission by device [Unknown]
  - Device use error [Unknown]
  - Device information output issue [Unknown]
  - Device breakage [Unknown]
  - Device issue [Unknown]
  - Device mechanical issue [Unknown]
